FAERS Safety Report 25441314 (Version 1)
Quarter: 2025Q2

REPORT INFORMATION
  Report Type: Spontaneous
  Country: IL (occurrence: IL)
  Receive Date: 20250616
  Receipt Date: 20250616
  Transmission Date: 20250717
  Serious: Yes (Hospitalization, Other)
  Sender: BRISTOL-MYERS SQUIBB COMPANY
  Company Number: IL-BRISTOL-MYERS SQUIBB COMPANY-2025-082835

PATIENT
  Age: 59 Year
  Sex: Female

DRUGS (2)
  1. OPDIVO [Suspect]
     Active Substance: NIVOLUMAB
     Indication: Metastatic malignant melanoma
  2. CANDOR [Concomitant]
     Indication: Product used for unknown indication

REACTIONS (13)
  - Hypophysitis [Recovering/Resolving]
  - Asthenia [Unknown]
  - Decreased appetite [Unknown]
  - Nausea [Unknown]
  - Vomiting [Unknown]
  - Dizziness postural [Unknown]
  - Hypotension [Unknown]
  - Blood glucose decreased [Unknown]
  - Hyponatraemia [Unknown]
  - Cortisol abnormal [Unknown]
  - Thyroid function test abnormal [Unknown]
  - Hypertensive urgency [Unknown]
  - Hypothyroidism [Unknown]

NARRATIVE: CASE EVENT DATE: 20250601
